FAERS Safety Report 9234913 (Version 1)
Quarter: 2013Q2

REPORT INFORMATION
  Report Type: Spontaneous
  Country: IT (occurrence: IT)
  Receive Date: 20130416
  Receipt Date: 20130416
  Transmission Date: 20140414
  Serious: Yes (Hospitalization)
  Sender: FDA-Public Use
  Company Number: IT-MYLANLABS-2013S1007356

PATIENT
  Age: 65 Year
  Sex: Female
  Weight: 70 kg

DRUGS (3)
  1. VANCOMYCIN [Suspect]
     Indication: ENTEROCOCCAL INFECTION
     Route: 042
     Dates: start: 20130301, end: 20130326
  2. LEVOFLOXACIN [Suspect]
     Indication: ENTEROCOCCAL INFECTION
     Route: 042
     Dates: start: 20130301, end: 20130326
  3. RIFADIN /00146901/ [Suspect]
     Indication: ENTEROCOCCAL INFECTION
     Dates: start: 20130301, end: 20130326

REACTIONS (4)
  - Erythema multiforme [Recovering/Resolving]
  - Laryngeal oedema [Recovering/Resolving]
  - Urticaria [Recovering/Resolving]
  - Drug hypersensitivity [Recovering/Resolving]
